FAERS Safety Report 11614699 (Version 3)
Quarter: 2018Q2

REPORT INFORMATION
  Report Type: Report from Study
  Country: US (occurrence: US)
  Receive Date: 20151009
  Receipt Date: 20180509
  Transmission Date: 20180711
  Serious: Yes (Death, Other)
  Sender: FDA-Public Use
  Company Number: US-AMGEN-USASL2015103439

PATIENT
  Age: 81 Year
  Sex: Male
  Weight: 60.95 kg

DRUGS (1)
  1. PROCRIT [Suspect]
     Active Substance: ERYTHROPOIETIN
     Indication: PRODUCT USED FOR UNKNOWN INDICATION
     Dosage: 40000 UNIT, QWK
     Route: 065

REACTIONS (13)
  - Disease progression [Fatal]
  - Hypersomnia [Unknown]
  - Cough [Unknown]
  - Palpitations [Unknown]
  - Hypertension [Unknown]
  - Increased tendency to bruise [Unknown]
  - Pulmonary embolism [Unknown]
  - Myalgia [Unknown]
  - Mass [Unknown]
  - Hospice care [Unknown]
  - Myelodysplastic syndrome [Unknown]
  - Fatigue [Unknown]
  - Malaise [Unknown]

NARRATIVE: CASE EVENT DATE: 2014
